FAERS Safety Report 11090200 (Version 4)
Quarter: 2016Q4

REPORT INFORMATION
  Report Type: Spontaneous
  Country: US (occurrence: US)
  Receive Date: 20150505
  Receipt Date: 20161021
  Transmission Date: 20170206
  Serious: Yes (Life-Threatening, Hospitalization, Other)
  Sender: FDA-Public Use
  Company Number: US-BAYER-2015-183424

PATIENT
  Age: 22 Year
  Sex: Female
  Weight: 58.5 kg

DRUGS (2)
  1. MIRENA [Suspect]
     Active Substance: LEVONORGESTREL
     Indication: CONTRACEPTION
     Dosage: 20 MCG/24HR, CONT
     Route: 015
     Dates: start: 201006, end: 201504
  2. MIRENA [Suspect]
     Active Substance: LEVONORGESTREL
     Indication: CONTRACEPTION
     Dosage: 20 MCG/24HR, CONT
     Route: 015
     Dates: start: 20100428, end: 201006

REACTIONS (10)
  - Uterine perforation [None]
  - Drug ineffective [None]
  - Medication error [None]
  - Injury [None]
  - Ovarian cyst [None]
  - General physical health deterioration [None]
  - Pregnancy with contraceptive device [None]
  - Abdominal pain lower [None]
  - Device issue [None]
  - Dyspareunia [None]

NARRATIVE: CASE EVENT DATE: 201004
